FAERS Safety Report 7549086-6 (Version None)
Quarter: 2011Q2

REPORT INFORMATION
  Report Type: 
  Country: None (occurrence: None)
  Receive Date: 20110615
  Receipt Date: 20110603
  Transmission Date: 20111010
  Serious: Yes (Other)
  Sender: FDA-Public Use
  Company Number: US-JNJFOC-20110604386

PATIENT
  Age: 25 Year
  Sex: Female
  Weight: 204.12 kg

DRUGS (2)
  1. EXTRA STRENGTH TYLENOL [Suspect]
     Route: 048
  2. EXTRA STRENGTH TYLENOL [Suspect]
     Indication: BACK PAIN
     Dosage: 1000 MG ONCE EVERY 4-6 HOURS
     Route: 048
     Dates: start: 20110516

REACTIONS (7)
  - HAEMORRHAGE [None]
  - NAUSEA [None]
  - DIARRHOEA [None]
  - NEPHROLITHIASIS [None]
  - DRUG EXPOSURE DURING PREGNANCY [None]
  - MUSCLE SPASMS [None]
  - ABDOMINAL PAIN [None]
